FAERS Safety Report 6656336-7 (Version None)
Quarter: 2010Q1

REPORT INFORMATION
  Report Type: 
  Country: None (occurrence: None)
  Receive Date: 20100329
  Receipt Date: 20100322
  Transmission Date: 20100710
  Serious: Yes (Other)
  Sender: FDA-Public Use
  Company Number: GB-BRISTOL-MYERS SQUIBB COMPANY-15027386

PATIENT
  Age: 67 Year
  Sex: Female

DRUGS (4)
  1. MITOMYCIN [Suspect]
     Indication: ANAL CANCER
     Route: 042
  2. FLUOROURACIL [Suspect]
     Indication: ANAL CANCER
     Dosage: 1 DF=1GM/M2/DAY
  3. DEXAMETHASONE [Suspect]
     Indication: ANAL CANCER
  4. RADIOTHERAPY [Suspect]
     Indication: ANAL CANCER

REACTIONS (2)
  - CANDIDIASIS [None]
  - STRIDOR [None]
